FAERS Safety Report 9717761 (Version 1)
Quarter: 2013Q4

REPORT INFORMATION
  Report Type: Spontaneous
  Country: US (occurrence: US)
  Receive Date: 20131127
  Receipt Date: 20131127
  Transmission Date: 20140711
  Serious: Yes (Death)
  Sender: FDA-Public Use
  Company Number: US-GLAXOSMITHKLINE-A1051480A

PATIENT
  Sex: Male

DRUGS (3)
  1. VOTRIENT [Suspect]
     Indication: SOFT TISSUE CANCER
     Dosage: 800MG PER DAY
     Route: 048
     Dates: start: 20130723, end: 20131113
  2. SIMVASTATIN [Concomitant]
  3. ZOFRAN [Concomitant]

REACTIONS (1)
  - Death [Fatal]
